FAERS Safety Report 11039887 (Version 1)
Quarter: 2015Q2

REPORT INFORMATION
  Report Type: Spontaneous
  Country: ES (occurrence: ES)
  Receive Date: 20150416
  Receipt Date: 20150416
  Transmission Date: 20150821
  Serious: Yes (Hospitalization, Other)
  Sender: FDA-Public Use
  Company Number: ES-BAYER-2015-114814

PATIENT
  Age: 72 Year
  Sex: Female
  Weight: 67 kg

DRUGS (10)
  1. ATORVASTATIN [Suspect]
     Active Substance: ATORVASTATIN
     Indication: ANGINA UNSTABLE
     Dosage: 20 MG, UNK
     Route: 048
  2. SEROXAT [Suspect]
     Active Substance: PAROXETINE HYDROCHLORIDE
     Dosage: 20 MG, QD
     Route: 065
     Dates: start: 20140314
  3. ATORVASTATIN [Suspect]
     Active Substance: ATORVASTATIN
     Indication: ANGINA UNSTABLE
     Dosage: 40 MG, QD
     Route: 048
     Dates: start: 20150210, end: 20150313
  4. ADIRO 100 [Suspect]
     Active Substance: ASPIRIN
     Dosage: 100 MG, QD
     Route: 065
     Dates: start: 20140827
  5. APROVEL [Suspect]
     Active Substance: IRBESARTAN
     Dosage: 300 MG, QD
     Route: 065
     Dates: start: 20140526
  6. ORFIDAL [Concomitant]
     Active Substance: LORAZEPAM
     Dosage: .5 MG, QD
  7. UNIKET [Concomitant]
     Active Substance: ISOSORBIDE MONONITRATE
     Dosage: 20 MG, BID
  8. BARNIDIPINE HYDROCHLORIDE [Concomitant]
     Active Substance: BARNIDIPINE HYDROCHLORIDE
     Dosage: 20 MG, QD
  9. NOCTAMID 2MG [Concomitant]
     Dosage: 2 MG, QD
  10. SALBUTAMOL [Concomitant]
     Active Substance: ALBUTEROL

REACTIONS (6)
  - Hepatitis acute [Recovering/Resolving]
  - Chromaturia [Unknown]
  - Pruritus generalised [Recovering/Resolving]
  - Liver function test abnormal [Recovering/Resolving]
  - Vomiting [Recovered/Resolved]
  - Diarrhoea [Recovered/Resolved]

NARRATIVE: CASE EVENT DATE: 20150217
